FAERS Safety Report 14082397 (Version 1)
Quarter: 2017Q4

REPORT INFORMATION
  Report Type: Spontaneous
  Country: US (occurrence: US)
  Receive Date: 20171013
  Receipt Date: 20171013
  Transmission Date: 20180321
  Serious: No
  Sender: FDA-Public Use
  Company Number: US-GLAXOSMITHKLINE-US2017153104

PATIENT
  Sex: Male

DRUGS (4)
  1. NICODERM CQ [Suspect]
     Active Substance: NICOTINE
     Indication: COLITIS ULCERATIVE
  2. NICODERM CQ [Suspect]
     Active Substance: NICOTINE
     Indication: COLITIS ULCERATIVE
  3. NICODERM CQ [Suspect]
     Active Substance: NICOTINE
     Indication: CROHN^S DISEASE
     Dosage: UNK
  4. NICODERM CQ [Suspect]
     Active Substance: NICOTINE
     Indication: CROHN^S DISEASE
     Dosage: 21 MG, UNK

REACTIONS (3)
  - Drug effective for unapproved indication [Unknown]
  - Drug ineffective for unapproved indication [Unknown]
  - Product use in unapproved indication [Unknown]
